FAERS Safety Report 16063619 (Version 1)
Quarter: 2019Q1

REPORT INFORMATION
  Report Type: Spontaneous
  Country: US (occurrence: US)
  Receive Date: 20190312
  Receipt Date: 20190312
  Transmission Date: 20190418
  Serious: Yes (Other)
  Sender: FDA-Public Use
  Company Number: US-ELI_LILLY_AND_COMPANY-US201902014169

PATIENT
  Sex: Female

DRUGS (3)
  1. BASAGLAR [Suspect]
     Active Substance: INSULIN GLARGINE
     Indication: TYPE 1 DIABETES MELLITUS
     Dosage: UNK UNK, UNKNOWN
     Route: 058
     Dates: start: 20181101
  2. BASAGLAR [Suspect]
     Active Substance: INSULIN GLARGINE
     Dosage: UNK UNK, UNKNOWN
     Route: 058
  3. NOVOLOG [Concomitant]
     Active Substance: INSULIN ASPART
     Indication: TYPE 1 DIABETES MELLITUS

REACTIONS (24)
  - Retinopathy [Unknown]
  - Gene mutation [Unknown]
  - Multiple allergies [Unknown]
  - Speech disorder [Unknown]
  - Malaise [Unknown]
  - Abnormal sensation in eye [Unknown]
  - Blood glucose decreased [Unknown]
  - Glycosylated haemoglobin increased [Unknown]
  - Thinking abnormal [Unknown]
  - Nasopharyngitis [Unknown]
  - Drug ineffective [Unknown]
  - Retinal haemorrhage [Unknown]
  - Neuropathy peripheral [Unknown]
  - Nervous system disorder [Unknown]
  - Fatigue [Unknown]
  - Blood glucose increased [Unknown]
  - Vision blurred [Unknown]
  - Asthenia [Unknown]
  - General physical health deterioration [Unknown]
  - Fibromyalgia [Unknown]
  - Urine abnormality [Unknown]
  - Visual impairment [Unknown]
  - Metabolic disorder [Unknown]
  - Weight decreased [Unknown]
